APPROVED DRUG PRODUCT: NIFEDIPINE
Active Ingredient: NIFEDIPINE
Strength: 30MG
Dosage Form/Route: TABLET, EXTENDED RELEASE;ORAL
Application: A216019 | Product #001
Applicant: SWISS PHARMACEUTICAL CO LTD
Approved: Nov 18, 2022 | RLD: No | RS: No | Type: DISCN